FAERS Safety Report 8922740 (Version 2)
Quarter: 2013Q1

REPORT INFORMATION
  Report Type: Spontaneous
  Country: US (occurrence: US)
  Receive Date: 20121123
  Receipt Date: 20130114
  Transmission Date: 20140127
  Serious: No
  Sender: FDA-Public Use
  Company Number: US-PFIZER INC-2012292547

PATIENT
  Age: 58 Year
  Sex: Male
  Weight: 67.12 kg

DRUGS (5)
  1. LIPITOR [Suspect]
     Indication: BLOOD CHOLESTEROL INCREASED
     Dosage: 40 MG, 1X/DAY
  2. FLOMAX ^BOEHRINGER INGELHEIM^ [Suspect]
     Indication: INCONTINENCE
     Dosage: UNK
     Dates: start: 2012, end: 2012
  3. VESICARE [Suspect]
     Indication: INCONTINENCE
     Dosage: 5 MG, DAILY (Q DAY)
     Route: 048
     Dates: start: 20121022, end: 2012
  4. VESICARE [Suspect]
     Indication: HYPERTONIC BLADDER
  5. METOPROLOL [Concomitant]
     Indication: BLOOD PRESSURE ABNORMAL
     Dosage: UNK

REACTIONS (7)
  - Incontinence [Unknown]
  - Feeling abnormal [Unknown]
  - Hallucination [Unknown]
  - Gait disturbance [Unknown]
  - Movement disorder [Unknown]
  - Confusional state [Unknown]
  - Drug ineffective [Unknown]
